FAERS Safety Report 7599642-4 (Version None)
Quarter: 2011Q2

REPORT INFORMATION
  Report Type: 
  Country: None (occurrence: None)
  Receive Date: 20110621
  Receipt Date: 20110609
  Transmission Date: 20111010
  Serious: Yes (Other)
  Sender: FDA-Public Use
  Company Number: 2011028874

PATIENT
  Sex: Female
  Weight: 90 kg

DRUGS (11)
  1. TEMAZEPAM [Concomitant]
  2. SERTRALINE HC (SERTRALINE) [Concomitant]
  3. CLONAZEPAM [Concomitant]
  4. CYMBALTA [Concomitant]
  5. LEVOTHYROXINE [Concomitant]
  6. AMLODIPINE [Concomitant]
  7. SIMVASTATIN [Concomitant]
  8. LISINOPRIL [Concomitant]
  9. FUROSEMIDE [Concomitant]
  10. HIZENTRA [Suspect]
     Indication: IMMUNODEFICIENCY COMMON VARIABLE
     Dosage: 14 G 1X/WEEK, SUBCUTANEOUS
     Route: 058
  11. OMEPRAZOLE [Concomitant]

REACTIONS (5)
  - STAPHYLOCOCCAL INFECTION [None]
  - BLOOD IMMUNOGLOBULIN G INCREASED [None]
  - INJECTION SITE INFECTION [None]
  - PANCYTOPENIA [None]
  - FATIGUE [None]
